FAERS Safety Report 8537804-X (Version None)
Quarter: 2012Q3

REPORT INFORMATION
  Report Type: 
  Country: None (occurrence: None)
  Receive Date: 20120725
  Receipt Date: 20120720
  Transmission Date: 20120928
  Serious: Yes (Hospitalization)
  Sender: FDA-Public Use
  Company Number: CA-B.I. PHARMACEUTICALS,INC./RIDGEFIELD-2012-CN-01581CN

PATIENT
  Age: 69 Year
  Sex: Female

DRUGS (5)
  1. LIPID LOWERING DRUGS [Concomitant]
     Indication: DYSLIPIDAEMIA
  2. PRADAXA [Suspect]
     Indication: ATRIAL FIBRILLATION
     Dosage: 300 MG
     Route: 048
     Dates: start: 20120201
  3. CITALOPRAM HYDROBROMIDE [Concomitant]
     Indication: DEPRESSION
  4. ANTIHYPERTENSIVES [Concomitant]
     Indication: HYPERTENSION
  5. CARBAMAZEPINE [Concomitant]
     Indication: CONVULSION

REACTIONS (1)
  - EMBOLIC STROKE [None]
